FAERS Safety Report 7794231-0 (Version None)
Quarter: 2011Q3

REPORT INFORMATION
  Report Type: 
  Country: None (occurrence: None)
  Receive Date: 20110929
  Receipt Date: 20110919
  Transmission Date: 20111222
  Serious: Yes (Hospitalization)
  Sender: FDA-Public Use
  Company Number: 1046624

PATIENT
  Age: 10 Year
  Sex: Female
  Weight: 29 kg

DRUGS (11)
  1. ONDANSERTRON HYDROCHLORIDE [Suspect]
     Indication: PROCEDURAL NAUSEA
     Dosage: 4 MG MILLIGRAM(S), INTRAVENOUS (NOT OTHERWISE SPECIFIED)
     Route: 042
     Dates: start: 20110907, end: 20110907
  2. CEFOTAXIME [Concomitant]
  3. (SUXAMETHONIUM) [Concomitant]
  4. VECURONIUM BROMIDE [Concomitant]
  5. (DICLOFENAC) [Concomitant]
  6. IBUPROFEN [Concomitant]
  7. METRONIDAZOLE [Concomitant]
  8. ALBUTEROL [Concomitant]
  9. ACETAMINOPHEN [Concomitant]
  10. (THIOPENTONE  /00053401/) [Concomitant]
  11. MORPHINE [Concomitant]

REACTIONS (7)
  - SYNCOPE [None]
  - MALAISE [None]
  - BLOOD GLUCOSE DECREASED [None]
  - VISUAL IMPAIRMENT [None]
  - LOSS OF CONSCIOUSNESS [None]
  - CYANOSIS [None]
  - CHEST DISCOMFORT [None]
